FAERS Safety Report 6572455-8 (Version None)
Quarter: 2010Q1

REPORT INFORMATION
  Report Type: 
  Country: None (occurrence: None)
  Receive Date: 20100205
  Receipt Date: 20100129
  Transmission Date: 20100710
  Serious: Yes (Life-Threatening, Other)
  Sender: FDA-Public Use
  Company Number: GB-TEVA-222810ISR

PATIENT
  Age: 86 Year
  Sex: Male

DRUGS (5)
  1. PROCHLORPERAZINE [Suspect]
  2. RANIBIZUMAB [Suspect]
     Indication: MACULAR DEGENERATION
     Dates: start: 20090901
  3. RANIBIZUMAB [Suspect]
     Dates: start: 20080610
  4. RANIBIZUMAB [Suspect]
     Dates: end: 20090113
  5. RANIBIZUMAB [Suspect]
     Dates: end: 20091027

REACTIONS (10)
  - ANGINA PECTORIS [None]
  - ARTERIOSCLEROSIS CORONARY ARTERY [None]
  - BLOOD CHOLESTEROL INCREASED [None]
  - ELECTROCARDIOGRAM T WAVE INVERSION [None]
  - HEART RATE INCREASED [None]
  - INTRACARDIAC THROMBUS [None]
  - ISCHAEMIA [None]
  - LEFT VENTRICULAR FAILURE [None]
  - LIVER FUNCTION TEST ABNORMAL [None]
  - MYOCARDIAL INFARCTION [None]
